FAERS Safety Report 8478921-2 (Version None)
Quarter: 2012Q2

REPORT INFORMATION
  Report Type: 
  Country: None (occurrence: None)
  Receive Date: 20120629
  Receipt Date: 20120620
  Transmission Date: 20120825
  Serious: Yes (Other)
  Sender: FDA-Public Use
  Company Number: DK-JNJFOC-20120605328

PATIENT
  Sex: Female

DRUGS (2)
  1. REMICADE [Suspect]
     Indication: CROHN'S DISEASE
     Route: 042
     Dates: start: 20111222, end: 20111222
  2. REMICADE [Suspect]
     Route: 042
     Dates: start: 20110714

REACTIONS (3)
  - CYTOMEGALOVIRUS INFECTION [None]
  - TRANSAMINASES INCREASED [None]
  - CROHN'S DISEASE [None]
